FAERS Safety Report 9295553 (Version 1)
Quarter: 2013Q1

REPORT INFORMATION
  Report Type: Spontaneous
  Country: US (occurrence: None)
  Receive Date: 20121227
  Receipt Date: 20121227
  Transmission Date: 20140127
  Serious: Yes (Other)
  Sender: FDA-Public Use
  Company Number: PHEH2012US006614

PATIENT
  Age: 12 Year
  Sex: Male
  Weight: 36 kg

DRUGS (6)
  1. EXJADE (*CGP 72670*) UNKNOWN [Suspect]
     Indication: SERUM FERRITIN INCREASED
     Route: 048
     Dates: start: 200902, end: 20120128
  2. EXJADE (*CGP 72670*) UNKNOWN [Suspect]
     Indication: IRON OVERLOAD
     Route: 048
     Dates: start: 200902, end: 20120128
  3. AMOXIL (AMOXICILLIN TRIHYDRATE) [Concomitant]
  4. VITAMINS NOS (VITAMINS NOS) [Concomitant]
  5. MOTRIN (IBUPROFEN) [Concomitant]
  6. VICODIN (HYDROCODONE BITARTRATE, PARACETAMOL) [Concomitant]

REACTIONS (2)
  - Hepatic enzyme increased [None]
  - Autoantibody test [None]
